FAERS Safety Report 9571597 (Version 1)
Quarter: 2013Q3

REPORT INFORMATION
  Report Type: Spontaneous
  Country: US (occurrence: None)
  Receive Date: 20130930
  Receipt Date: 20130930
  Transmission Date: 20140515
  Serious: Yes (Other)
  Sender: FDA-Public Use
  Company Number: None

PATIENT
  Age: 90 Year
  Sex: Female
  Weight: 48.08 kg

DRUGS (1)
  1. CIPROFLOXACIN [Suspect]
     Indication: URINARY TRACT INFECTION
     Dosage: 400MG Q/2 PERCENT IV
     Route: 042
     Dates: start: 20130927

REACTIONS (3)
  - Infusion site erythema [None]
  - Infusion site pain [None]
  - Infusion site pruritus [None]
